FAERS Safety Report 11993241 (Version 1)
Quarter: 2016Q1

REPORT INFORMATION
  Report Type: Spontaneous
  Country: US (occurrence: US)
  Receive Date: 20160203
  Receipt Date: 20160203
  Transmission Date: 20160526
  Serious: Yes (Hospitalization)
  Sender: FDA-Public Use
  Company Number: US-BEH-2016058278

PATIENT
  Age: 11 Year
  Sex: Male
  Weight: 27 kg

DRUGS (8)
  1. EPIPEN [Concomitant]
     Active Substance: EPINEPHRINE
  2. FERROUS SULFATE [Concomitant]
     Active Substance: FERROUS SULFATE\FERROUS SULFATE, DRIED
  3. CEFDINIR. [Concomitant]
     Active Substance: CEFDINIR
  4. DIPHENHYDRAMINE. [Concomitant]
     Active Substance: DIPHENHYDRAMINE
  5. TYLENOL-CODEINE [Concomitant]
  6. HIZENTRA [Suspect]
     Active Substance: HUMAN IMMUNOGLOBULIN G
     Indication: SELECTIVE IGM IMMUNODEFICIENCY
     Route: 058
     Dates: start: 20110823
  7. LIDOCAINE/PRILOCAINE [Concomitant]
  8. AMOXICILLIN. [Concomitant]
     Active Substance: AMOXICILLIN

REACTIONS (2)
  - Central venous catheterisation [Unknown]
  - Catheter removal [Recovered/Resolved]

NARRATIVE: CASE EVENT DATE: 20151207
